FAERS Safety Report 4366520-3 (Version None)
Quarter: 2004Q2

REPORT INFORMATION
  Report Type: 
  Country: None (occurrence: None)
  Receive Date: 20040527
  Receipt Date: 20040217
  Transmission Date: 20050107
  Serious: Yes (Hospitalization)
  Sender: FDA-Public Use
  Company Number: JP-ROCHE-359172

PATIENT
  Age: 81 Year
  Sex: Male
  Weight: 45.5 kg

DRUGS (11)
  1. TAMIFLU [Suspect]
     Route: 048
     Dates: start: 20040205, end: 20040210
  2. RESPLEN [Concomitant]
     Route: 048
     Dates: start: 20040205, end: 20040210
  3. PL [Concomitant]
     Route: 048
     Dates: start: 20040205, end: 20040210
  4. LOXONIN [Concomitant]
     Route: 048
     Dates: start: 20040205, end: 20040209
  5. SELBEX [Concomitant]
     Route: 048
     Dates: start: 20040205, end: 20040209
  6. LASIX [Concomitant]
     Dates: start: 20040112
  7. RENIVACE [Concomitant]
     Dates: start: 20040112
  8. ALDACTONE-A [Concomitant]
     Dates: start: 20040112
  9. ALLOPURINOL TAB [Concomitant]
     Dates: start: 20040112
  10. ASPIRIN [Concomitant]
     Dates: start: 20040112
  11. GASTER (JAPAN) [Concomitant]
     Dates: start: 20040112

REACTIONS (2)
  - HAEMODIALYSIS [None]
  - RENAL FAILURE [None]
